FAERS Safety Report 24452993 (Version 1)
Quarter: 2024Q4

REPORT INFORMATION
  Report Type: Spontaneous
  Country: US (occurrence: US)
  Receive Date: 20241017
  Receipt Date: 20241017
  Transmission Date: 20250114
  Serious: No
  Sender: SUNOVION
  Company Number: US-UROVANT SCIENCES GMBH-202406-URV-000922

PATIENT
  Sex: Male

DRUGS (4)
  1. GEMTESA [Suspect]
     Active Substance: VIBEGRON
     Dosage: 75 MG, QD, MORNING (4 OR 5 AM)
     Route: 065
  2. GEMTESA [Suspect]
     Active Substance: VIBEGRON
     Indication: Micturition urgency
  3. GEMTESA [Suspect]
     Active Substance: VIBEGRON
     Indication: Pollakiuria
  4. GEMTESA [Suspect]
     Active Substance: VIBEGRON
     Indication: Urinary incontinence

REACTIONS (1)
  - Drug effect less than expected [Unknown]
